FAERS Safety Report 7551599-8 (Version None)
Quarter: 2011Q2

REPORT INFORMATION
  Report Type: 
  Country: None (occurrence: None)
  Receive Date: 20110616
  Receipt Date: 20110602
  Transmission Date: 20111010
  Serious: Yes (Other)
  Sender: FDA-Public Use
  Company Number: US-BAYER-201018318NA

PATIENT
  Sex: Female
  Weight: 85.714 kg

DRUGS (7)
  1. CEPHALEXIN [Concomitant]
  2. CHANTIX [Concomitant]
     Dosage: UNK
     Dates: start: 20070806
  3. YASMIN [Suspect]
     Indication: PRODUCT USED FOR UNKNOWN INDICATION
     Dosage: UNK UNK, UNK
     Route: 048
     Dates: start: 20061201, end: 20080101
  4. AZITHROMYCIN [Concomitant]
  5. IBUPROFEN [Concomitant]
  6. YAZ [Suspect]
     Indication: PRODUCT USED FOR UNKNOWN INDICATION
     Dosage: UNK UNK, UNK
     Route: 048
     Dates: start: 20090501, end: 20091001
  7. GLYBURIDE [Concomitant]

REACTIONS (5)
  - GALLBLADDER DISORDER [None]
  - EMOTIONAL DISTRESS [None]
  - CHOLECYSTITIS CHRONIC [None]
  - PSYCHIATRIC SYMPTOM [None]
  - MENTAL DISORDER [None]
